FAERS Safety Report 15755296 (Version 4)
Quarter: 2018Q4

REPORT INFORMATION
  Report Type: Spontaneous
  Country: GB (occurrence: GB)
  Receive Date: 20181224
  Receipt Date: 20181231
  Transmission Date: 20190205
  Serious: Yes (Death, Hospitalization)
  Sender: FDA-Public Use
  Company Number: PHHY2018GB189464

PATIENT
  Age: 79 Year
  Sex: Female

DRUGS (4)
  1. PREDNISOLONE. [Suspect]
     Active Substance: PREDNISOLONE
     Dosage: 40 MG
     Route: 048
  2. CYCLOPHOSPHAMIDE. [Suspect]
     Active Substance: CYCLOPHOSPHAMIDE
     Indication: ANTI-NEUTROPHIL CYTOPLASMIC ANTIBODY POSITIVE VASCULITIS
     Dosage: 100 MG NOCTE
     Route: 065
  3. PREDNISOLONE. [Suspect]
     Active Substance: PREDNISOLONE
     Indication: ANTI-NEUTROPHIL CYTOPLASMIC ANTIBODY POSITIVE VASCULITIS
     Dosage: 60 MG HIGH DOSE, TAPERING
     Route: 048
  4. COTRIMOXAZOLE [Concomitant]
     Active Substance: SULFAMETHOXAZOLE\TRIMETHOPRIM
     Indication: PROPHYLAXIS
     Route: 065

REACTIONS (12)
  - Lymphopenia [Unknown]
  - Thrombocytopenia [Unknown]
  - Oesophagitis haemorrhagic [Fatal]
  - Melaena [Fatal]
  - Mouth ulceration [Unknown]
  - Shock [Unknown]
  - Duodenitis [Fatal]
  - Sepsis [Fatal]
  - Haematemesis [Fatal]
  - Gastrointestinal disorder [Fatal]
  - Renal injury [Fatal]
  - Herpes simplex oesophagitis [Unknown]
